FAERS Safety Report 9295228 (Version 1)
Quarter: 2013Q2

REPORT INFORMATION
  Report Type: Spontaneous
  Country: US (occurrence: None)
  Receive Date: 20130516
  Receipt Date: 20130516
  Transmission Date: 20140414
  Serious: Yes (Hospitalization)
  Sender: FDA-Public Use
  Company Number: None

PATIENT
  Age: 72 Year
  Sex: Female
  Weight: 101 kg

DRUGS (10)
  1. WARFARIN [Suspect]
     Indication: DEEP VEIN THROMBOSIS
     Route: 048
     Dates: start: 2001
  2. WARFARIN [Suspect]
     Indication: PULMONARY EMBOLISM
     Route: 048
     Dates: start: 2001
  3. ASPIRIN [Suspect]
     Route: 048
  4. ATENOLOL [Concomitant]
  5. FOLIC ACID [Concomitant]
  6. HCTZ [Concomitant]
  7. LEVOTHYROXINE [Concomitant]
  8. SIMVASTATIN [Concomitant]
  9. CYANOCOBALAMIN [Concomitant]
  10. VITAMIN E [Concomitant]

REACTIONS (13)
  - Asthenia [None]
  - Dizziness [None]
  - Dyspnoea [None]
  - Melaena [None]
  - Gastric ulcer haemorrhage [None]
  - Coagulopathy [None]
  - International normalised ratio increased [None]
  - Urinary tract infection [None]
  - Sepsis [None]
  - Liver function test abnormal [None]
  - Leukocytosis [None]
  - Lymphadenopathy [None]
  - Neoplasm malignant [None]
